FAERS Safety Report 9025413 (Version 1)
Quarter: 2013Q1

REPORT INFORMATION
  Report Type: Spontaneous
  Country: US (occurrence: US)
  Receive Date: 20130122
  Receipt Date: 20130122
  Transmission Date: 20140127
  Serious: No
  Sender: FDA-Public Use
  Company Number: US-OPTIMER PHARMACEUTICALS, INC.-20120103

PATIENT
  Age: 52 Year
  Sex: Female
  Weight: 61.22 kg

DRUGS (7)
  1. DIFICID [Suspect]
     Indication: CLOSTRIDIUM DIFFICILE COLITIS
     Dosage: 200 MG, BID
     Route: 048
     Dates: start: 20120714, end: 20120724
  2. AMITIZA [Concomitant]
     Indication: CONSTIPATION
     Dosage: 24 MCG, BID
     Route: 048
     Dates: start: 201008
  3. DEPLIN [Concomitant]
     Dosage: 15 MG, EVERY MORNING
     Route: 048
     Dates: start: 201204
  4. CYMBALTA [Concomitant]
     Dosage: 60 MG, EVERY MORNING
     Route: 048
     Dates: start: 201112
  5. MIRTAZAPINE [Concomitant]
     Dosage: 45 MG, EVERY EVENING
     Route: 048
     Dates: start: 201112
  6. CHLORDIAZEPOXIDE W/CLIDINIUM [Concomitant]
     Dosage: UNK
     Route: 048
     Dates: start: 201107
  7. LORAZEPAM [Concomitant]
     Dosage: 0.5 MG
     Route: 048

REACTIONS (2)
  - Diarrhoea [Recovered/Resolved]
  - Drug ineffective [Unknown]
